FAERS Safety Report 11707205 (Version 1)
Quarter: 2015Q4

REPORT INFORMATION
  Report Type: Spontaneous
  Country: None (occurrence: DK)
  Receive Date: 20151106
  Receipt Date: 20151106
  Transmission Date: 20160304
  Serious: Yes (Other)
  Sender: FDA-Public Use
  Company Number: DK-MEDAC PHARMA, INC.-1043887

PATIENT
  Age: 58 Year
  Sex: Female

DRUGS (2)
  1. ROACTEMRA [Suspect]
     Active Substance: TOCILIZUMAB
     Route: 058
     Dates: start: 20150217, end: 20151002
  2. METEX [Suspect]
     Active Substance: METFORMIN HYDROCHLORIDE
     Indication: RHEUMATOID ARTHRITIS
     Route: 058
     Dates: start: 20140224

REACTIONS (1)
  - Breast cancer [Not Recovered/Not Resolved]
